FAERS Safety Report 4983791-0 (Version None)
Quarter: 2006Q2

REPORT INFORMATION
  Report Type: 
  Country: None (occurrence: None)
  Receive Date: 20060426
  Receipt Date: 20060227
  Transmission Date: 20061013
  Serious: Yes (Hospitalization, Other)
  Sender: FDA-Public Use
  Company Number: DE-ABBOTT-06P-062-0326548-00

PATIENT
  Sex: Female
  Weight: 55 kg

DRUGS (3)
  1. HUMIRA [Suspect]
     Indication: RHEUMATOID ARTHRITIS
     Route: 058
     Dates: start: 20050801, end: 20060206
  2. PREDNISOLONE [Concomitant]
     Indication: RHEUMATOID ARTHRITIS
     Dosage: 5-15 MG
     Route: 048
     Dates: start: 20060117, end: 20060124
  3. IBUPROFEN [Concomitant]
     Indication: RHEUMATOID ARTHRITIS
     Route: 048

REACTIONS (9)
  - ASTHENIA [None]
  - BACTERIURIA [None]
  - BENIGN RENAL NEOPLASM [None]
  - DECREASED APPETITE [None]
  - DIARRHOEA [None]
  - GALLBLADDER DISORDER [None]
  - URINARY RETENTION [None]
  - VOMITING [None]
  - WEIGHT DECREASED [None]
